FAERS Safety Report 16175212 (Version 1)
Quarter: 2019Q2

REPORT INFORMATION
  Report Type: Report from Study
  Country: None (occurrence: AU)
  Receive Date: 20190409
  Receipt Date: 20190409
  Transmission Date: 20190711
  Serious: Yes (Other)
  Sender: FDA-Public Use
  Company Number: AU-ABBVIE-19S-008-2730813-00

PATIENT
  Age: 77 Year
  Sex: Male

DRUGS (1)
  1. LUCRIN DEPOT [Suspect]
     Active Substance: LEUPROLIDE ACETATE
     Indication: PROSTATE CANCER
     Route: 030
     Dates: start: 2017

REACTIONS (4)
  - Spinal laminectomy [Unknown]
  - Monoplegia [Unknown]
  - Prostate cancer metastatic [Not Recovered/Not Resolved]
  - Muscular weakness [Unknown]

NARRATIVE: CASE EVENT DATE: 201902
